FAERS Safety Report 6370104-5 (Version None)
Quarter: 2009Q3

REPORT INFORMATION
  Report Type: 
  Country: None (occurrence: None)
  Receive Date: 20090921
  Receipt Date: 20090921
  Transmission Date: 20100115
  Serious: Yes (Other)
  Sender: FDA-Public Use
  Company Number: None

PATIENT
  Sex: Female
  Weight: 74.8435 kg

DRUGS (1)
  1. NEXIUM [Suspect]
     Indication: COUGH
     Dosage: 1 CAPSULE EVERY DAY MOUTH
     Route: 048
     Dates: start: 20090501, end: 20090701

REACTIONS (5)
  - BURNING SENSATION [None]
  - DISCOMFORT [None]
  - LIP PAIN [None]
  - LIP SWELLING [None]
  - STOMATITIS [None]
